FAERS Safety Report 9448358 (Version 2)
Quarter: 2013Q3

REPORT INFORMATION
  Report Type: Spontaneous
  Country: US (occurrence: US)
  Receive Date: 20130808
  Receipt Date: 20130923
  Transmission Date: 20140515
  Serious: Yes (Other)
  Sender: FDA-Public Use
  Company Number: US-PFIZER INC-2013229309

PATIENT
  Age: 87 Year
  Sex: Male
  Weight: 65.76 kg

DRUGS (2)
  1. LYRICA [Suspect]
     Indication: HEADACHE
     Dosage: 50 MG, 2X/DAY
     Route: 048
     Dates: start: 20120209
  2. BUTALBITAL, ACETAMINOPHEN + CAFFEINE [Concomitant]
     Indication: HEADACHE
     Dosage: 50/325/40 MG, AS NEEDED

REACTIONS (3)
  - Off label use [Unknown]
  - Macular degeneration [Unknown]
  - Hearing impaired [Unknown]
